FAERS Safety Report 12497212 (Version 1)
Quarter: 2016Q2

REPORT INFORMATION
  Report Type: Report from Study
  Country: AU (occurrence: AU)
  Receive Date: 20160624
  Receipt Date: 20160624
  Transmission Date: 20160815
  Serious: Yes (Other)
  Sender: FDA-Public Use
  Company Number: AU-REGENERON PHARMACEUTICALS, INC.-2016-18529

PATIENT

DRUGS (1)
  1. EYLEA [Suspect]
     Active Substance: AFLIBERCEPT
     Indication: NEOVASCULAR AGE-RELATED MACULAR DEGENERATION
     Dosage: 2 MG, Q1MON/4 WEEKLY TO RIGHT EYE
     Route: 031
     Dates: start: 20151105

REACTIONS (5)
  - Neovascular age-related macular degeneration [Unknown]
  - Injection site discomfort [Recovered/Resolved]
  - Product use issue [Unknown]
  - Injection site pain [Recovered/Resolved]
  - Lacrimation increased [Recovered/Resolved]
